FAERS Safety Report 7333163-9 (Version None)
Quarter: 2011Q1

REPORT INFORMATION
  Report Type: 
  Country: None (occurrence: None)
  Receive Date: 20110304
  Receipt Date: 20110301
  Transmission Date: 20110831
  Serious: Yes (Disabling)
  Sender: FDA-Public Use
  Company Number: BR-ABBOTT-11P-020-0708470-00

PATIENT
  Sex: Female
  Weight: 60 kg

DRUGS (9)
  1. OMEPRAZOLE [Concomitant]
     Indication: GASTRIC DISORDER
     Route: 048
  2. FOLIC ACID [Concomitant]
     Indication: ANAEMIA
     Route: 048
  3. METHOTREXATE [Concomitant]
     Indication: ARTHRITIS
     Route: 048
  4. FERROUS SULFATE TAB [Concomitant]
     Indication: ANAEMIA
     Route: 048
  5. OMEPRAZOLE [Concomitant]
     Indication: PROPHYLAXIS
  6. KETOPROFEN [Concomitant]
     Indication: PAIN
     Route: 048
  7. HUMIRA [Suspect]
     Indication: JUVENILE ARTHRITIS
     Route: 058
     Dates: start: 20050101, end: 20110208
  8. PREDSIM [Concomitant]
     Indication: ARTHRITIS
     Route: 048
  9. HUMIRA [Suspect]
     Route: 058

REACTIONS (5)
  - CHONDROLYSIS [None]
  - TRAUMATIC HAEMATOMA [None]
  - ROAD TRAFFIC ACCIDENT [None]
  - VIRAL INFECTION [None]
  - ARTHRALGIA [None]
